FAERS Safety Report 10228774 (Version 1)
Quarter: 2014Q2

REPORT INFORMATION
  Report Type: Spontaneous
  Country: CN (occurrence: CN)
  Receive Date: 20140610
  Receipt Date: 20140610
  Transmission Date: 20141212
  Serious: Yes (Hospitalization)
  Sender: FDA-Public Use
  Company Number: CN-ASTRAZENECA-2014SE40453

PATIENT
  Age: 2078 Day
  Sex: Male
  Weight: 15 kg

DRUGS (8)
  1. BUDESONIDE [Suspect]
     Indication: TRACHEAL DISORDER
     Route: 055
     Dates: start: 20120405, end: 20120411
  2. TERBUTALINE SULFATE [Suspect]
     Indication: BRONCHIAL DISORDER
     Route: 055
     Dates: start: 20120405, end: 20120411
  3. AMBROXOL [Suspect]
     Indication: SPUTUM ABNORMAL
     Route: 041
     Dates: start: 20120405, end: 20120411
  4. AMBROXOL [Suspect]
     Indication: INCREASED UPPER AIRWAY SECRETION
     Route: 041
     Dates: start: 20120405, end: 20120411
  5. IPRATROPIUM BROMIDE [Suspect]
     Indication: TRACHEAL DISORDER
     Route: 055
     Dates: start: 20120405, end: 20120411
  6. CEFUROXIME [Suspect]
     Indication: INFECTION
     Route: 042
     Dates: start: 20120405, end: 20120411
  7. AZITHROMYCIN [Suspect]
     Indication: INFECTION
     Route: 048
     Dates: start: 20120407, end: 20120409
  8. AZITHROMYCIN [Suspect]
     Indication: MYCOPLASMA INFECTION
     Route: 048
     Dates: start: 20120407, end: 20120409

REACTIONS (2)
  - Leukopenia [Recovering/Resolving]
  - Granulocytopenia [Recovering/Resolving]
